FAERS Safety Report 4673213-1 (Version None)
Quarter: 2005Q2

REPORT INFORMATION
  Report Type: 
  Country: None (occurrence: None)
  Receive Date: 20050523
  Receipt Date: 20050523
  Transmission Date: 20051028
  Serious: Yes (Other)
  Sender: FDA-Public Use
  Company Number: None

PATIENT
  Age: 63 Year
  Sex: Male
  Weight: 106.4 kg

DRUGS (15)
  1. ALBUTEROL SULFATE AND IPRATROPIUM BROMIDE [Suspect]
  2. GEMFIBROZIL [Concomitant]
  3. GLYBURIDE 5MG/METFORMIN HCL [Concomitant]
  4. ISOSORBIDE MONONITRATE [Concomitant]
  5. IRBESARTAN [Concomitant]
  6. ATORVASTATIN CALCIUM [Concomitant]
  7. ALPRAZOLAM [Concomitant]
  8. SERTRALINE HCL [Concomitant]
  9. MELOXICAM [Concomitant]
  10. HYDROCORTISONE [Concomitant]
  11. ALBUTEROL [Concomitant]
  12. IPRATROPIUM BROMIDE [Concomitant]
  13. QUETIAPINE FUMARATE [Concomitant]
  14. ALBUTEROL SULFATE AND IPRATROPIUM BROMIDE [Concomitant]
  15. DILTIAZEM (INWOOD) [Concomitant]

REACTIONS (1)
  - HEADACHE [None]
